FAERS Safety Report 23459881 (Version 3)
Quarter: 2024Q2

REPORT INFORMATION
  Report Type: Report from Study
  Country: CL (occurrence: CL)
  Receive Date: 20240131
  Receipt Date: 20240423
  Transmission Date: 20240716
  Serious: Yes (Hospitalization)
  Sender: FDA-Public Use
  Company Number: CL-SUN PHARMACEUTICAL INDUSTRIES LTD-2024RR-429292

PATIENT
  Age: 63 Year
  Sex: Female

DRUGS (6)
  1. CAPECITABINE [Suspect]
     Active Substance: CAPECITABINE
     Indication: Adenocarcinoma gastric
     Dosage: 1000 MILLIGRAM/SQ. METER, BID
     Route: 048
     Dates: start: 20231026
  2. CAPECITABINE [Suspect]
     Active Substance: CAPECITABINE
     Dosage: 1000 MILLIGRAM/SQ. METER, BID
     Route: 048
     Dates: start: 20240105, end: 20240110
  3. OXALIPLATIN [Suspect]
     Active Substance: OXALIPLATIN
     Indication: Adenocarcinoma gastric
     Dosage: 130 MILLIGRAM/SQ. METER EVERY 3 WEEKS
     Route: 040
     Dates: start: 20231026
  4. OXALIPLATIN [Suspect]
     Active Substance: OXALIPLATIN
     Dosage: 130 MILLIGRAM/SQ. METER
     Route: 040
     Dates: start: 20231222, end: 20240110
  5. ZANIDATAMAB [Suspect]
     Active Substance: ZANIDATAMAB
     Indication: Adenocarcinoma gastric
     Dosage: 1800 MILLIGRAM EVERY 3 WEEKS
     Route: 040
     Dates: start: 20231222, end: 20240110
  6. ZANIDATAMAB [Suspect]
     Active Substance: ZANIDATAMAB
     Dosage: 1800 MILLIGRAM, EVERY 3 WEEKS
     Dates: start: 20231026

REACTIONS (1)
  - Hypokalaemia [Recovered/Resolved]
